FAERS Safety Report 8186577-1 (Version None)
Quarter: 2012Q1

REPORT INFORMATION
  Report Type: 
  Country: None (occurrence: None)
  Receive Date: 20120305
  Receipt Date: 20120305
  Transmission Date: 20120608
  Serious: Yes (Hospitalization)
  Sender: FDA-Public Use
  Company Number: None

PATIENT
  Sex: Male
  Weight: 52.3 kg

DRUGS (7)
  1. METHOTREXATE [Suspect]
     Dosage: 25 MG
  2. ALLOPURINOL [Suspect]
     Dosage: 5100 MG
  3. DAUNORUBICIN HCL [Suspect]
     Dosage: 155 MG
  4. PEG-L-ASPARAGINASE (K-H) [Suspect]
     Dosage: 4000 IU
  5. CYTARABINE [Suspect]
     Dosage: 70 MG
  6. METHYLPREDNISOLONE [Suspect]
     Dosage: 2800 MG
  7. VINCRISTINE SULFATE [Suspect]
     Dosage: 8 MG

REACTIONS (4)
  - FEBRILE NEUTROPENIA [None]
  - ESCHERICHIA BACTERAEMIA [None]
  - STAPHYLOCOCCAL BACTERAEMIA [None]
  - UTERINE DILATION AND CURETTAGE [None]
